FAERS Safety Report 6372062-6 (Version None)
Quarter: 2009Q3

REPORT INFORMATION
  Report Type: 
  Country: None (occurrence: None)
  Receive Date: 20090917
  Receipt Date: 20090729
  Transmission Date: 20100115
  Serious: Yes (Hospitalization)
  Sender: FDA-Public Use
  Company Number: JPI-P-006599

PATIENT
  Age: 56 Year
  Sex: Female

DRUGS (4)
  1. XYREM [Suspect]
     Indication: CATAPLEXY
     Dosage: 4.5 GM (2.25 GM, 2 IN 1 D), ORAL, 6 GM (3 GM, 2 IN 1 D), ORAL; 7.5 GM (3.75 GM 2 IN 1 D), ORAL
     Route: 048
     Dates: start: 20081013, end: 20081111
  2. XYREM [Suspect]
     Indication: CATAPLEXY
     Dosage: 4.5 GM (2.25 GM, 2 IN 1 D), ORAL, 6 GM (3 GM, 2 IN 1 D), ORAL; 7.5 GM (3.75 GM 2 IN 1 D), ORAL
     Route: 048
     Dates: start: 20081112, end: 20090205
  3. XYREM [Suspect]
     Indication: CATAPLEXY
     Dosage: 4.5 GM (2.25 GM, 2 IN 1 D), ORAL, 6 GM (3 GM, 2 IN 1 D), ORAL; 7.5 GM (3.75 GM 2 IN 1 D), ORAL
     Route: 048
     Dates: start: 20090206
  4. MODAFINIL [Concomitant]

REACTIONS (28)
  - ANXIETY [None]
  - ARTHRALGIA [None]
  - BALANCE DISORDER [None]
  - CHEST DISCOMFORT [None]
  - DECREASED APPETITE [None]
  - DISCOMFORT [None]
  - DISTURBANCE IN ATTENTION [None]
  - DYSPNOEA [None]
  - FATIGUE [None]
  - HAEMORRHOIDS [None]
  - HEADACHE [None]
  - HYPOAESTHESIA [None]
  - INITIAL INSOMNIA [None]
  - MALAISE [None]
  - MIGRAINE [None]
  - MUSCLE SPASMS [None]
  - MYALGIA [None]
  - NERVOUSNESS [None]
  - NIGHT SWEATS [None]
  - PALLOR [None]
  - PALPITATIONS [None]
  - PARAESTHESIA [None]
  - RESPIRATORY DISORDER [None]
  - SOMNOLENCE [None]
  - TREMOR [None]
  - URINARY INCONTINENCE [None]
  - VISION BLURRED [None]
  - WEIGHT DECREASED [None]
